FAERS Safety Report 14859709 (Version 3)
Quarter: 2019Q2

REPORT INFORMATION
  Report Type: Spontaneous
  Country: US (occurrence: US)
  Receive Date: 20180508
  Receipt Date: 20190418
  Transmission Date: 20190711
  Serious: No
  Sender: FDA-Public Use
  Company Number: US-PFIZER INC-2018186527

PATIENT
  Age: 66 Year
  Sex: Female
  Weight: 54 kg

DRUGS (5)
  1. ESTRING [Suspect]
     Active Substance: ESTRADIOL
     Indication: HORMONE REPLACEMENT THERAPY
     Dosage: UNK(EVERY 13 WEEKS)
     Dates: start: 2016
  2. IMITREX [Concomitant]
     Active Substance: SUMATRIPTAN SUCCINATE
     Indication: MIGRAINE
     Dosage: UNK(20+ YRS AGO, 1ST INJECTION THEN ORAL)
  3. ESTRING [Suspect]
     Active Substance: ESTRADIOL
     Indication: HOT FLUSH
     Dosage: 2 MG, CYCLIC (ONCE EVERY 10 WEEKS)
  4. ESTRING [Suspect]
     Active Substance: ESTRADIOL
     Indication: SLEEP DISORDER
  5. IMITREX [Concomitant]
     Active Substance: SUMATRIPTAN SUCCINATE
     Indication: MIGRAINE
     Dosage: 50 MG, AS NEEDED (50 MG, PRN, I DON^T TAKE IT ALL THE TIME.) (20+ YRS AGO, 1ST INJECTION THEN ORAL)
     Route: 048

REACTIONS (1)
  - Drug ineffective for unapproved indication [Unknown]
